FAERS Safety Report 8513395-4 (Version None)
Quarter: 2012Q3

REPORT INFORMATION
  Report Type: 
  Country: None (occurrence: None)
  Receive Date: 20120717
  Receipt Date: 20120703
  Transmission Date: 20120928
  Serious: Yes (Hospitalization)
  Sender: FDA-Public Use
  Company Number: FR-BRISTOL-MYERS SQUIBB COMPANY-16742520

PATIENT
  Age: 77 Year
  Sex: Female

DRUGS (6)
  1. TAXOL [Suspect]
     Indication: BREAST CANCER METASTATIC
     Dosage: RESTARTED:14JUN2012
     Route: 042
     Dates: start: 20120607
  2. FEMARA [Suspect]
     Indication: BREAST CANCER METASTATIC
     Route: 048
     Dates: start: 20120607
  3. LORAZEPAM [Suspect]
     Indication: ANXIETY
     Route: 048
  4. STABLON [Suspect]
     Indication: DEPRESSION
     Route: 048
     Dates: start: 20120607, end: 20120608
  5. LORAZEPAM [Suspect]
     Indication: DEPRESSION
     Route: 048
  6. SECTRAL [Suspect]
     Route: 048

REACTIONS (2)
  - GRAND MAL CONVULSION [None]
  - COMA [None]
